FAERS Safety Report 9371279 (Version 1)
Quarter: 2013Q2

REPORT INFORMATION
  Report Type: Spontaneous
  Country: US (occurrence: None)
  Receive Date: 20130626
  Receipt Date: 20130626
  Transmission Date: 20140414
  Serious: Yes (Life-Threatening, Other)
  Sender: FDA-Public Use
  Company Number: None

PATIENT
  Age: 16 None
  Sex: Female
  Weight: 52.3 kg

DRUGS (2)
  1. ZYPREXA [Suspect]
     Indication: BIPOLAR DISORDER
     Route: 048
     Dates: start: 20100907, end: 20101010
  2. ZYPREXA [Suspect]
     Indication: MANIA
     Route: 048
     Dates: start: 20100907, end: 20101010

REACTIONS (4)
  - Somnolence [None]
  - Fear [None]
  - Dizziness [None]
  - Heart rate decreased [None]
